FAERS Safety Report 11424415 (Version 1)
Quarter: 2015Q3

REPORT INFORMATION
  Report Type: Spontaneous
  Country: US (occurrence: US)
  Receive Date: 20150827
  Receipt Date: 20150827
  Transmission Date: 20151125
  Serious: No
  Sender: FDA-Public Use
  Company Number: US-SA-2014SA125089

PATIENT
  Age: 79 Year
  Sex: Female

DRUGS (3)
  1. MULTAQ [Suspect]
     Active Substance: DRONEDARONE
     Indication: ATRIAL FIBRILLATION
     Route: 065
     Dates: start: 201408
  2. COUMADIN [Concomitant]
     Active Substance: WARFARIN SODIUM
  3. SUCRALFATE. [Concomitant]
     Active Substance: SUCRALFATE

REACTIONS (3)
  - Dizziness [Not Recovered/Not Resolved]
  - Fatigue [Not Recovered/Not Resolved]
  - Asthenia [Not Recovered/Not Resolved]
